FAERS Safety Report 12596494 (Version 3)
Quarter: 2016Q3

REPORT INFORMATION
  Report Type: Spontaneous
  Country: CL (occurrence: CL)
  Receive Date: 20160726
  Receipt Date: 20160811
  Transmission Date: 20161109
  Serious: Yes (Hospitalization, Other)
  Sender: FDA-Public Use
  Company Number: CL-PFIZER INC-2016347952

PATIENT
  Age: 45 Year
  Sex: Female

DRUGS (4)
  1. XALKORI [Suspect]
     Active Substance: CRIZOTINIB
     Indication: LUNG ADENOCARCINOMA STAGE IV
     Dosage: 250 MG, 2X/DAY
     Route: 048
     Dates: start: 20160629
  2. TRAMADOL. [Concomitant]
     Active Substance: TRAMADOL
  3. PARACETAMOL [Concomitant]
     Active Substance: ACETAMINOPHEN
  4. XARELTO [Concomitant]
     Active Substance: RIVAROXABAN

REACTIONS (11)
  - Gastritis [Unknown]
  - Bone pain [Recovering/Resolving]
  - Liver function test abnormal [Recovered/Resolved]
  - Oesophageal ulcer [Unknown]
  - Odynophagia [Recovered/Resolved]
  - Sinus bradycardia [Unknown]
  - General physical health deterioration [Recovered/Resolved]
  - Abdominal pain upper [Recovered/Resolved]
  - Visual acuity reduced [Unknown]
  - Nausea [Recovered/Resolved]
  - Vomiting [Recovered/Resolved]

NARRATIVE: CASE EVENT DATE: 20160629
